FAERS Safety Report 24545776 (Version 1)
Quarter: 2024Q4

REPORT INFORMATION
  Report Type: Spontaneous
  Country: US (occurrence: None)
  Receive Date: 20241024
  Receipt Date: 20241024
  Transmission Date: 20250115
  Serious: Yes (Disabling)
  Sender: Public
  Company Number: None

PATIENT
  Age: 67 Year
  Sex: Male
  Weight: 103.05 kg

DRUGS (2)
  1. EXPAREL [Suspect]
     Active Substance: BUPIVACAINE
     Dates: start: 20240808
  2. BUPIVACAINE [Suspect]
     Active Substance: BUPIVACAINE

REACTIONS (2)
  - Paralysis [None]
  - Paraesthesia [None]

NARRATIVE: CASE EVENT DATE: 20240808
